FAERS Safety Report 17918768 (Version 1)
Quarter: 2020Q2

REPORT INFORMATION
  Report Type: Spontaneous
  Country: US (occurrence: US)
  Receive Date: 20200619
  Receipt Date: 20200619
  Transmission Date: 20200714
  Serious: No
  Sender: FDA-Public Use
  Company Number: US-GALDERMA-US2020022232

PATIENT
  Age: 40 Year
  Sex: Female

DRUGS (6)
  1. PROACTIV DEEP CLEANSING WASH [Concomitant]
     Active Substance: SALICYLIC ACID
     Indication: ACNE
     Route: 061
     Dates: start: 201912, end: 202003
  2. PROACTIV MD ADAPALENE ACNE TREATMENT [Suspect]
     Active Substance: ADAPALENE
     Indication: ACNE
     Dosage: 0.1%
     Route: 061
     Dates: start: 201912, end: 202003
  3. PROACTIV T-ZONE OIL ABSORBER [Concomitant]
     Indication: ACNE
     Route: 061
     Dates: start: 201912, end: 202003
  4. PROACTIV AMAZONIAN CLAY MASK [Concomitant]
     Indication: ACNE
     Route: 061
     Dates: start: 201912, end: 202003
  5. PROACTIV GREEN TEA MOISTURIZER [Concomitant]
     Active Substance: COSMETICS
     Indication: ACNE
     Route: 061
     Dates: start: 201912, end: 202003
  6. PROACTIV REDNESS RELIEF SERUM [Concomitant]
     Indication: ACNE
     Route: 061
     Dates: start: 201912, end: 202003

REACTIONS (3)
  - Skin irritation [Recovered/Resolved]
  - Product use issue [Recovered/Resolved]
  - Erythema [Recovered/Resolved]

NARRATIVE: CASE EVENT DATE: 201912
